FAERS Safety Report 12419616 (Version 1)
Quarter: 2016Q2

REPORT INFORMATION
  Report Type: Spontaneous
  Country: JP (occurrence: JP)
  Receive Date: 20160531
  Receipt Date: 20160531
  Transmission Date: 20160815
  Serious: Yes (Other)
  Sender: FDA-Public Use
  Company Number: JP-ROCHE-1765683

PATIENT
  Sex: Female

DRUGS (3)
  1. RIVOTRIL [Suspect]
     Active Substance: CLONAZEPAM
     Indication: PRODUCT USED FOR UNKNOWN INDICATION
     Dosage: DOSAGE IS UNCERTAIN.
     Route: 048
  2. HYDANTOL [Concomitant]
     Active Substance: PHENYTOIN SODIUM
     Dosage: DOSAGE IS UNCERTAIN.
     Route: 048
  3. E KEPPRA [Concomitant]
     Active Substance: LEVETIRACETAM
     Dosage: DOSAGE IS UNCERTAIN.
     Route: 048

REACTIONS (1)
  - Developmental delay [Unknown]
